FAERS Safety Report 19478202 (Version 3)
Quarter: 2022Q2

REPORT INFORMATION
  Report Type: Spontaneous
  Country: CZ (occurrence: CZ)
  Receive Date: 20210630
  Receipt Date: 20220513
  Transmission Date: 20220721
  Serious: Yes (Death, Other)
  Sender: FDA-Public Use
  Company Number: CZ-002147023-NVSC2021CZ123940

PATIENT
  Sex: Male

DRUGS (5)
  1. RITUXIMAB [Suspect]
     Active Substance: RITUXIMAB
     Indication: Diffuse large B-cell lymphoma
     Dosage: UNK
     Dates: start: 20200723
  2. ETOPOSIDE [Suspect]
     Active Substance: ETOPOSIDE
     Indication: Diffuse large B-cell lymphoma
     Dosage: UNK
     Dates: start: 20200723
  3. CARBOPLATIN [Concomitant]
     Active Substance: CARBOPLATIN
     Dosage: UNK
     Dates: start: 20200723
  4. MESNA [Concomitant]
     Active Substance: MESNA
     Dosage: UNK
     Route: 065
     Dates: start: 20200723
  5. IFOSFAMIDE [Concomitant]
     Active Substance: IFOSFAMIDE
     Dosage: UNK
     Dates: start: 20200723

REACTIONS (8)
  - Diffuse large B-cell lymphoma recurrent [Fatal]
  - Diplopia [Unknown]
  - IIIrd nerve paresis [Unknown]
  - Metastases to meninges [Unknown]
  - Vomiting [Unknown]
  - Headache [Unknown]
  - Procedural failure [Unknown]
  - Off label use [Unknown]

NARRATIVE: CASE EVENT DATE: 20200723
